FAERS Safety Report 8967869 (Version 2)
Quarter: 2014Q4

REPORT INFORMATION
  Report Type: Report from Study
  Country: US (occurrence: US)
  Receive Date: 20121217
  Receipt Date: 20141014
  Transmission Date: 20150529
  Serious: Yes (Hospitalization, Other)
  Sender: FDA-Public Use
  Company Number: US-ASTRAZENECA-2012SE92250

PATIENT
  Age: 58 Year
  Sex: Female

DRUGS (4)
  1. CRESTOR [Suspect]
     Active Substance: ROSUVASTATIN CALCIUM
     Indication: BLOOD CHOLESTEROL ABNORMAL
     Route: 048
     Dates: start: 2000, end: 20141001
  2. INSULIN PUMP [Concomitant]
     Active Substance: INSULIN NOS
     Indication: DIABETES MELLITUS
  3. CRESTOR [Suspect]
     Active Substance: ROSUVASTATIN CALCIUM
     Indication: BLOOD CHOLESTEROL ABNORMAL
     Route: 048
     Dates: start: 20141001
  4. MULTIPLE MEDICATIONS [Concomitant]
     Active Substance: UNSPECIFIED INGREDIENT

REACTIONS (19)
  - Cataract [Unknown]
  - Cardiac failure congestive [Unknown]
  - Muscle spasms [Unknown]
  - Off label use [Not Recovered/Not Resolved]
  - Chronic kidney disease [Recovered/Resolved]
  - Staphylococcal infection [Unknown]
  - Diverticulitis [Unknown]
  - Blood pressure increased [Unknown]
  - Blood phosphorus increased [Unknown]
  - Irritable bowel syndrome [Unknown]
  - Drug ineffective [Unknown]
  - Blood cholesterol increased [Unknown]
  - Malaise [Unknown]
  - Post procedural infection [Unknown]
  - Umbilical hernia [Unknown]
  - Poisoning [Unknown]
  - Blood triglycerides increased [Unknown]
  - Chest pain [Unknown]
  - Gastrointestinal disorder [Unknown]

NARRATIVE: CASE EVENT DATE: 2000
